FAERS Safety Report 9744904 (Version 2)
Quarter: 2013Q4

REPORT INFORMATION
  Report Type: Report from Study
  Country: CA (occurrence: CA)
  Receive Date: 20131211
  Receipt Date: 20131211
  Transmission Date: 20140711
  Serious: Yes (Other)
  Sender: FDA-Public Use
  Company Number: CA-ROCHE-1216666

PATIENT
  Sex: Female
  Weight: 56.7 kg

DRUGS (8)
  1. RITUXAN [Suspect]
     Indication: RHEUMATOID ARTHRITIS
     Route: 042
     Dates: start: 20100728
  2. PLAQUENIL [Concomitant]
  3. METHOTREXATE [Concomitant]
  4. TYLENOL #3 (CANADA) [Concomitant]
  5. DIPHENHYDRAMINE HYDROCHLORIDE [Concomitant]
     Indication: PREMEDICATION
     Route: 048
     Dates: start: 20100728
  6. ACETAMINOPHEN [Concomitant]
     Indication: PREMEDICATION
     Route: 048
     Dates: start: 20100728
  7. METHYLPREDNISOLON [Concomitant]
     Indication: PREMEDICATION
     Route: 042
     Dates: start: 20100728
  8. PREDNISONE [Concomitant]

REACTIONS (3)
  - Arthritis [Not Recovered/Not Resolved]
  - Pain [Unknown]
  - Weight increased [Unknown]
